FAERS Safety Report 6929416-6 (Version None)
Quarter: 2010Q3

REPORT INFORMATION
  Report Type: 
  Country: None (occurrence: None)
  Receive Date: 20100809
  Receipt Date: 20100315
  Transmission Date: 20110219
  Serious: No
  Sender: FDA-Public Use
  Company Number: US-001676

PATIENT
  Age: 81 Year
  Sex: Male

DRUGS (17)
  1. DEGARELIX (240 MG, 80 MG, 80 MG, 80 MG) [Suspect]
     Indication: PROSTATE CANCER
     Dosage: SEE IMAGE
     Route: 058
     Dates: start: 20091208, end: 20091208
  2. DEGARELIX (240 MG, 80 MG, 80 MG, 80 MG) [Suspect]
     Indication: PROSTATE CANCER
     Dosage: SEE IMAGE
     Route: 058
     Dates: start: 20090105
  3. DEGARELIX (240 MG, 80 MG, 80 MG, 80 MG) [Suspect]
     Indication: PROSTATE CANCER
     Dosage: SEE IMAGE
     Route: 058
     Dates: start: 20100202
  4. DEGARELIX (240 MG, 80 MG, 80 MG, 80 MG) [Suspect]
     Indication: PROSTATE CANCER
     Dosage: SEE IMAGE
     Route: 058
     Dates: start: 20100304
  5. ATENOLOL [Concomitant]
  6. CENTRUM SILVER /01292501/ [Concomitant]
  7. COUMADIN [Concomitant]
  8. DOXYCYCLINE [Concomitant]
  9. ERYTHROMYCIN [Concomitant]
  10. FUROSEMIDE [Concomitant]
  11. VICODIN [Concomitant]
  12. LANOXIN [Concomitant]
  13. LISINOPRIL [Concomitant]
  14. OXYCODONE [Concomitant]
  15. PRILOSEC [Concomitant]
  16. PROSCAR [Concomitant]
  17. TERAZOSIN HCL [Concomitant]

REACTIONS (1)
  - INJECTION SITE PAIN [None]
